FAERS Safety Report 19081101 (Version 1)
Quarter: 2021Q1

REPORT INFORMATION
  Report Type: Spontaneous
  Country: US (occurrence: US)
  Receive Date: 20210331
  Receipt Date: 20210331
  Transmission Date: 20210420
  Serious: No
  Sender: FDA-Public Use
  Company Number: US-CARDINAL HEALTH 414-CAHLYMPH-AE-20-30

PATIENT
  Sex: Female

DRUGS (1)
  1. LYMPHOSEEK [Suspect]
     Active Substance: TECHNETIUM TC-99M TILMANOCEPT
     Indication: LYMPHATIC MAPPING
     Route: 050
     Dates: start: 20200724, end: 20200724

REACTIONS (4)
  - Injection site haemorrhage [Unknown]
  - Off label use [Recovered/Resolved]
  - Underdose [Unknown]
  - Discharge [Unknown]

NARRATIVE: CASE EVENT DATE: 20200724
